FAERS Safety Report 19820414 (Version 1)
Quarter: 2021Q3

REPORT INFORMATION
  Report Type: Spontaneous
  Country: US (occurrence: US)
  Receive Date: 20210913
  Receipt Date: 20210913
  Transmission Date: 20211014
  Serious: No
  Sender: FDA-Public Use
  Company Number: US-TEVA-2021-US-1950543

PATIENT
  Sex: Female

DRUGS (1)
  1. ESTRADIOL. [Suspect]
     Active Substance: ESTRADIOL
     Route: 065

REACTIONS (4)
  - Nausea [Not Recovered/Not Resolved]
  - Food allergy [Not Recovered/Not Resolved]
  - Product formulation issue [Unknown]
  - Abdominal pain upper [Not Recovered/Not Resolved]
